FAERS Safety Report 8041161-5 (Version None)
Quarter: 2012Q1

REPORT INFORMATION
  Report Type: 
  Country: None (occurrence: None)
  Receive Date: 20120112
  Receipt Date: 20120104
  Transmission Date: 20120608
  Serious: Yes (Hospitalization)
  Sender: FDA-Public Use
  Company Number: US-JNJFOC-20111011887

PATIENT
  Sex: Male

DRUGS (9)
  1. AMBIEN [Concomitant]
  2. REMICADE [Suspect]
     Indication: CROHN'S DISEASE
     Route: 042
     Dates: start: 20110629
  3. FLAGYL [Suspect]
     Indication: PYREXIA
  4. ZOCOR [Concomitant]
  5. BUDESONIDE [Concomitant]
  6. CIPROFLOXACIN [Suspect]
     Indication: PYREXIA
  7. REMICADE [Suspect]
     Route: 042
     Dates: start: 20110101
  8. REMICADE [Suspect]
     Route: 042
     Dates: start: 20110801
  9. REMICADE [Suspect]
     Route: 042
     Dates: start: 20111018

REACTIONS (4)
  - SURGERY [None]
  - DRUG EFFECT DECREASED [None]
  - CONVULSION [None]
  - MENTAL STATUS CHANGES [None]
